FAERS Safety Report 10866128 (Version 1)
Quarter: 2015Q1

REPORT INFORMATION
  Report Type: Spontaneous
  Country: US (occurrence: None)
  Receive Date: 20150219
  Receipt Date: 20150219
  Transmission Date: 20150721
  Serious: Yes (Other)
  Sender: FDA-Public Use
  Company Number: 2745742

PATIENT
  Age: 65 Year
  Sex: Female

DRUGS (2)
  1. SUCCINYLCHOLINE CHLORIDE. [Suspect]
     Active Substance: SUCCINYLCHOLINE CHLORIDE
     Indication: NEUROMUSCULAR BLOCKADE
  2. VECURONIUM BROMIDE. [Suspect]
     Active Substance: VECURONIUM BROMIDE
     Indication: NEUROMUSCULAR BLOCKADE

REACTIONS (4)
  - Myasthenic syndrome [None]
  - Respiratory disorder [None]
  - Somnolence [None]
  - Hypercapnia [None]
